FAERS Safety Report 16823437 (Version 2)
Quarter: 2019Q4

REPORT INFORMATION
  Report Type: Spontaneous
  Country: JP (occurrence: JP)
  Receive Date: 20190918
  Receipt Date: 20191028
  Transmission Date: 20200122
  Serious: Yes (Hospitalization)
  Sender: FDA-Public Use
  Company Number: JP-009507513-1904JPN001871J

PATIENT
  Age: 77 Year
  Sex: Male
  Weight: 49 kg

DRUGS (16)
  1. ZETIA [Suspect]
     Active Substance: EZETIMIBE
     Indication: HYPERCHOLESTEROLAEMIA
     Dosage: 10 MILLIGRAM, QD
     Route: 048
     Dates: end: 20190123
  2. BISOPROLOL [Concomitant]
     Active Substance: BISOPROLOL
     Dosage: 1 DOSAGE FORM, QM
     Route: 065
  3. TAMSULOSIN HYDROCHLORIDE OD [Concomitant]
     Active Substance: TAMSULOSIN HYDROCHLORIDE
     Dosage: 0.2 MILLIGRAM, QD
     Route: 065
     Dates: end: 20190124
  4. THYRADIN S [Concomitant]
     Active Substance: LEVOTHYROXINE SODIUM
     Dosage: 100 MILLIGRAM, QM
     Route: 065
  5. TAMSULOSIN HYDROCHLORIDE. [Concomitant]
     Active Substance: TAMSULOSIN HYDROCHLORIDE
     Dosage: 0.2 MILLIGRAM, QM
     Route: 065
     Dates: end: 20190124
  6. REMERON [Concomitant]
     Active Substance: MIRTAZAPINE
     Dosage: 7.5 MILLIGRAM, HS
     Route: 048
     Dates: end: 20190123
  7. TRAZODONE HYDROCHLORIDE. [Concomitant]
     Active Substance: TRAZODONE HYDROCHLORIDE
     Dosage: 25 MILLIGRAM, HS
     Route: 065
  8. LANSOPRAZOLE. [Suspect]
     Active Substance: LANSOPRAZOLE
     Dosage: UNK
     Route: 048
     Dates: end: 20190123
  9. PREDNISOLONE. [Concomitant]
     Active Substance: PREDNISOLONE
     Dosage: 25 MILLIGRAM, QM
     Route: 065
  10. LAC-B [Concomitant]
     Active Substance: BIFIDOBACTERIUM SPP.
     Dosage: 3 GRAM, TID
     Route: 065
  11. DONEPEZIL HYDROCHLORIDE OD [Suspect]
     Active Substance: DONEPEZIL HYDROCHLORIDE
     Dosage: 5 MILLIGRAM, QM
     Route: 048
     Dates: end: 20190117
  12. ROSUVASTATIN. [Concomitant]
     Active Substance: ROSUVASTATIN
     Dosage: 1 DOSAGE FORM, QM
     Route: 065
  13. TAKECAB [Suspect]
     Active Substance: VONOPRAZAN FUMURATE
     Dosage: 20 MILLIGRAM, QM
     Route: 065
     Dates: end: 20190124
  14. BELSOMRA [Concomitant]
     Active Substance: SUVOREXANT
     Dosage: 1 DOSAGE FORM, PRN
     Route: 048
     Dates: end: 20190120
  15. TIAPRIDE [Concomitant]
     Active Substance: TIAPRIDE
     Dosage: 75 MILLIGRAM, TID
     Route: 065
     Dates: end: 20190307
  16. BIOFERMIN [Concomitant]
     Active Substance: DIETARY SUPPLEMENT\PROBIOTICS
     Dosage: 3 GRAM, TID
     Route: 065

REACTIONS (2)
  - Clostridium test positive [Unknown]
  - Diarrhoea [Recovered/Resolved]

NARRATIVE: CASE EVENT DATE: 20181227
